FAERS Safety Report 5701084-0 (Version None)
Quarter: 2008Q2

REPORT INFORMATION
  Report Type: 
  Country: None (occurrence: None)
  Receive Date: 20080410
  Receipt Date: 20080409
  Transmission Date: 20081010
  Serious: Yes (Hospitalization)
  Sender: FDA-Public Use
  Company Number: FR-WYE-G01375908

PATIENT
  Age: 76 Year
  Sex: Male

DRUGS (11)
  1. TAZOCILLINE [Suspect]
     Indication: HYPERTHERMIA
     Dosage: UNKNOWN
     Route: 042
     Dates: start: 20080125, end: 20080125
  2. TAZOCILLINE [Suspect]
     Indication: C-REACTIVE PROTEIN INCREASED
  3. CIFLOX [Suspect]
     Indication: HYPERTHERMIA
     Dosage: UNKNOWN
     Route: 042
     Dates: start: 20080125, end: 20080126
  4. CIFLOX [Suspect]
     Indication: C-REACTIVE PROTEIN INCREASED
  5. ROCEPHIN [Suspect]
     Indication: HYPERTHERMIA
     Dosage: UNKNOWN
     Route: 042
     Dates: start: 20080123, end: 20080124
  6. ROCEPHIN [Suspect]
     Indication: C-REACTIVE PROTEIN INCREASED
  7. FORTUM [Suspect]
     Indication: HYPERTHERMIA
     Dosage: UNKNOWN
     Route: 042
     Dates: start: 20080126, end: 20080126
  8. FORTUM [Suspect]
     Indication: C-REACTIVE PROTEIN INCREASED
  9. ALIMTA [Suspect]
     Indication: BRONCHIAL NEOPLASM
     Dosage: UNKNOWN
     Route: 042
     Dates: start: 20080117, end: 20080117
  10. OFLOCET [Suspect]
     Indication: HYPERTHERMIA
     Dosage: 200 MG/40 ML (FREQUENCY UNKNOWN)
     Route: 042
     Dates: start: 20080123, end: 20080125
  11. OFLOCET [Suspect]
     Indication: C-REACTIVE PROTEIN INCREASED

REACTIONS (2)
  - PURPURA [None]
  - RASH MORBILLIFORM [None]
